FAERS Safety Report 7251395-5 (Version None)
Quarter: 2011Q1

REPORT INFORMATION
  Report Type: 
  Country: None (occurrence: None)
  Receive Date: 20110128
  Receipt Date: 20110120
  Transmission Date: 20110831
  Serious: Yes (Death)
  Sender: FDA-Public Use
  Company Number: US-PURDUE-USA-2010-0050032

PATIENT
  Sex: Male
  Weight: 117.91 kg

DRUGS (1)
  1. OXYCONTIN [Suspect]
     Indication: LUNG NEOPLASM MALIGNANT
     Dosage: 40 MG, SEE TEXT
     Route: 048
     Dates: start: 20090212

REACTIONS (1)
  - NEOPLASM MALIGNANT [None]
